FAERS Safety Report 8333428-8 (Version None)
Quarter: 2012Q1

REPORT INFORMATION
  Report Type: 
  Country: None (occurrence: None)
  Receive Date: 20120329
  Receipt Date: 20090805
  Transmission Date: 20120608
  Serious: Yes (Hospitalization, Other)
  Sender: FDA-Public Use
  Company Number: PHEH2009US08810

PATIENT
  Age: 77 Year
  Sex: Female

DRUGS (2)
  1. EXELON [Suspect]
  2. NAMENDA [Concomitant]

REACTIONS (5)
  - BLOOD PRESSURE INCREASED [None]
  - ASTHENIA [None]
  - DIZZINESS [None]
  - DEHYDRATION [None]
  - URINARY INCONTINENCE [None]
